FAERS Safety Report 12267090 (Version 2)
Quarter: 2017Q2

REPORT INFORMATION
  Report Type: Spontaneous
  Country: IN (occurrence: IN)
  Receive Date: 20160414
  Receipt Date: 20170606
  Transmission Date: 20170830
  Serious: Yes (Other)
  Sender: FDA-Public Use
  Company Number: IN-SUN PHARMACEUTICAL INDUSTRIES LTD-2016R1-114200

PATIENT
  Age: 22 Year
  Sex: Female

DRUGS (8)
  1. LEVETIRACETAM. [Concomitant]
     Active Substance: LEVETIRACETAM
     Indication: POST-TRAUMATIC EPILEPSY
     Dosage: 1 G, BID
     Route: 042
  2. METRONIDAZOLE. [Concomitant]
     Active Substance: METRONIDAZOLE
     Indication: POST-TRAUMATIC EPILEPSY
     Dosage: 500 MG, BID
     Route: 042
     Dates: end: 20151004
  3. ACYCLOVIR. [Concomitant]
     Active Substance: ACYCLOVIR
     Indication: POST-TRAUMATIC EPILEPSY
     Dosage: 500 MG, TID
     Route: 042
     Dates: end: 20151004
  4. PHENYTOIN. [Suspect]
     Active Substance: PHENYTOIN
     Indication: POST-TRAUMATIC EPILEPSY
     Dosage: UNK
     Route: 065
  5. PHENYTOIN. [Suspect]
     Active Substance: PHENYTOIN
     Indication: POST-TRAUMATIC EPILEPSY
     Dosage: 100 MG, TID
     Route: 042
  6. MEROPENEM. [Concomitant]
     Active Substance: MEROPENEM
     Indication: POST-TRAUMATIC EPILEPSY
     Dosage: UNK
     Dates: end: 20151004
  7. SODIUM VALPROATE [Concomitant]
     Active Substance: VALPROATE SODIUM
     Indication: POST-TRAUMATIC EPILEPSY
     Dosage: 500 MG, BID
     Route: 042
  8. CEFTRIAXONE. [Concomitant]
     Active Substance: CEFTRIAXONE
     Indication: POST-TRAUMATIC EPILEPSY
     Dosage: 2 G, BID
     Route: 042
     Dates: end: 20151004

REACTIONS (1)
  - Acute generalised exanthematous pustulosis [Unknown]

NARRATIVE: CASE EVENT DATE: 20151017
